FAERS Safety Report 15665851 (Version 1)
Quarter: 2018Q4

REPORT INFORMATION
  Report Type: Report from Study
  Country: US (occurrence: US)
  Receive Date: 20181128
  Receipt Date: 20181128
  Transmission Date: 20190205
  Serious: Yes (Disabling)
  Sender: FDA-Public Use
  Company Number: US-BAYER-2018-218672

PATIENT
  Age: 64 Year
  Sex: Male

DRUGS (1)
  1. STIVARGA [Suspect]
     Active Substance: REGORAFENIB
     Indication: COLORECTAL CANCER
     Dosage: 40 MG DAILY
     Dates: start: 20181015, end: 20181107

REACTIONS (4)
  - Balance disorder [Recovered/Resolved]
  - Asthenia [Recovered/Resolved]
  - Off label use [None]
  - Mental status changes [Recovered/Resolved]

NARRATIVE: CASE EVENT DATE: 20181107
